FAERS Safety Report 20006609 (Version 2)
Quarter: 2022Q1

REPORT INFORMATION
  Report Type: Spontaneous
  Country: IT (occurrence: IT)
  Receive Date: 20211028
  Receipt Date: 20220110
  Transmission Date: 20220423
  Serious: Yes (Death, Other)
  Sender: FDA-Public Use
  Company Number: None

PATIENT
  Age: 90 Year
  Sex: Male
  Weight: 120 kg

DRUGS (1)
  1. FASTURTEC [Suspect]
     Active Substance: RASBURICASE
     Indication: Hyperuricaemia
     Dosage: 1 DF
     Route: 042
     Dates: start: 20211013

REACTIONS (3)
  - Renal failure [Fatal]
  - Haemolysis [Fatal]
  - Blood methaemoglobin [Fatal]

NARRATIVE: CASE EVENT DATE: 20211014
